FAERS Safety Report 23674224 (Version 1)
Quarter: 2024Q1

REPORT INFORMATION
  Report Type: Spontaneous
  Country: US (occurrence: None)
  Receive Date: 20240326
  Receipt Date: 20240326
  Transmission Date: 20240410
  Serious: Yes (Other)
  Sender: FDA-Public Use
  Company Number: US-ROCHE-3527942

PATIENT

DRUGS (1)
  1. ALECENSA [Suspect]
     Active Substance: ALECTINIB HYDROCHLORIDE
     Indication: Non-small cell lung cancer stage IV
     Route: 065

REACTIONS (2)
  - Metastatic neoplasm [Not Recovered/Not Resolved]
  - Malignant neoplasm progression [Unknown]
